FAERS Safety Report 6946309-9 (Version None)
Quarter: 2010Q3

REPORT INFORMATION
  Report Type: 
  Country: None (occurrence: None)
  Receive Date: 20100827
  Receipt Date: 20100818
  Transmission Date: 20110219
  Serious: Yes (Other)
  Sender: FDA-Public Use
  Company Number: FR-ALLERGAN-1010740US

PATIENT
  Age: 64 Year
  Sex: Male
  Weight: 85 kg

DRUGS (1)
  1. BIMATOPROST [Suspect]
     Indication: GLAUCOMA
     Dosage: UNK
     Dates: start: 20100119, end: 20100330

REACTIONS (1)
  - DYSPNOEA [None]
